FAERS Safety Report 24144841 (Version 1)
Quarter: 2024Q3

REPORT INFORMATION
  Report Type: Spontaneous
  Country: US (occurrence: US)
  Receive Date: 20240729
  Receipt Date: 20240729
  Transmission Date: 20241017
  Serious: Yes (Other)
  Sender: Haleon PLC
  Company Number: US-HALEON-2188407

PATIENT
  Sex: Male

DRUGS (1)
  1. NICORETTE [Suspect]
     Active Substance: NICOTINE
     Indication: Product used for unknown indication
     Dates: start: 20040101

REACTIONS (2)
  - Throat cancer [Recovering/Resolving]
  - Product use issue [Unknown]
